FAERS Safety Report 22245484 (Version 1)
Quarter: 2023Q2

REPORT INFORMATION
  Report Type: Spontaneous
  Country: RU (occurrence: RU)
  Receive Date: 20230424
  Receipt Date: 20230424
  Transmission Date: 20230722
  Serious: Yes (Death)
  Sender: FDA-Public Use
  Company Number: RU-002147023-NVSC2023RU092076

PATIENT
  Sex: Female

DRUGS (1)
  1. ACLASTA [Suspect]
     Active Substance: ZOLEDRONIC ACID
     Indication: Osteoporosis
     Dosage: UNK (INJECTION)
     Route: 065

REACTIONS (3)
  - Myocardial infarction [Fatal]
  - Influenza [Unknown]
  - Body temperature increased [Unknown]
